FAERS Safety Report 18131978 (Version 6)
Quarter: 2021Q4

REPORT INFORMATION
  Report Type: Report from Study
  Country: US (occurrence: US)
  Receive Date: 20200810
  Receipt Date: 20211022
  Transmission Date: 20220303
  Serious: Yes (Other)
  Sender: FDA-Public Use
  Company Number: US-UCBSA-2020030971

PATIENT
  Age: 74 Year
  Sex: Female

DRUGS (4)
  1. BRIVARACETAM [Suspect]
     Active Substance: BRIVARACETAM
     Indication: Seizure
     Dosage: 2MG IN MORNING AND TWO 2MG IN EVENING
  2. BRIVARACETAM [Suspect]
     Active Substance: BRIVARACETAM
     Dosage: 10MG ONE TABLET IN THE MORNING AND TWO TABLETS IN THE EVENING, 2X/DAY (BID)
  3. BRIVARACETAM [Suspect]
     Active Substance: BRIVARACETAM
     Dosage: 20MG HAS BEEN CUTTING IN HALF AND TAKING
  4. BRIVARACETAM [Suspect]
     Active Substance: BRIVARACETAM
     Dosage: 20 MILLIGRAM, 2X/DAY (BID)

REACTIONS (5)
  - Atrial fibrillation [Not Recovered/Not Resolved]
  - Seizure [Not Recovered/Not Resolved]
  - Feeling abnormal [Not Recovered/Not Resolved]
  - Off label use [Unknown]
  - Wrong technique in product usage process [Unknown]

NARRATIVE: CASE EVENT DATE: 20200701
